FAERS Safety Report 10908775 (Version 1)
Quarter: 2015Q1

REPORT INFORMATION
  Report Type: Spontaneous
  Country: IE (occurrence: IE)
  Receive Date: 20150312
  Receipt Date: 20150312
  Transmission Date: 20150721
  Serious: Yes (Other)
  Sender: FDA-Public Use
  Company Number: IE-PFIZER INC-2015082434

PATIENT
  Age: 86 Year
  Sex: Male
  Weight: 70 kg

DRUGS (9)
  1. ASPIRIN (GENERIC) [Suspect]
     Active Substance: ASPIRIN
     Dosage: 75 MG
     Route: 048
     Dates: start: 20140912, end: 20150219
  2. DESUNIN [Suspect]
     Active Substance: CHOLECALCIFEROL
     Dosage: 1600 UNITS
     Dates: start: 20140912, end: 20150219
  3. ZOPICLONE [Suspect]
     Active Substance: ZOPICLONE
     Dosage: 7.5 MG
     Dates: start: 20140912, end: 20150219
  4. XGEVA [Suspect]
     Active Substance: DENOSUMAB
     Indication: PROSTATE CANCER
     Dosage: 120 MG, UNK
     Route: 058
     Dates: start: 20140912
  5. ADALAT CC [Concomitant]
     Active Substance: NIFEDIPINE
     Dosage: 20 MG, UNK
     Dates: start: 20140912, end: 20150219
  6. ONEALFA [Suspect]
     Active Substance: ALFACALCIDOL
     Indication: HYPERPARATHYROIDISM
     Dosage: 0.75 MCG
     Route: 048
     Dates: start: 20140912, end: 20150220
  7. XTANDI [Suspect]
     Active Substance: ENZALUTAMIDE
     Dosage: 160 MG, UNK
     Dates: start: 20140912, end: 20150219
  8. VENOFER [Suspect]
     Active Substance: IRON SUCROSE
     Indication: MINERAL SUPPLEMENTATION
     Dosage: 100MG WEEKLY/FORTNIGHTLY
     Route: 042
     Dates: start: 20140912, end: 20150219
  9. LYRICA [Suspect]
     Active Substance: PREGABALIN
     Dosage: 25 MG
     Dates: start: 20140912

REACTIONS (2)
  - Hyperparathyroidism [Recovered/Resolved]
  - Hypocalcaemia [Recovered/Resolved]

NARRATIVE: CASE EVENT DATE: 20140912
